FAERS Safety Report 7724447 (Version 4)
Quarter: 2014Q3

REPORT INFORMATION
  Report Type: Spontaneous
  Country: US (occurrence: US)
  Receive Date: 20101221
  Receipt Date: 20140827
  Transmission Date: 20150326
  Serious: Yes (Hospitalization, Other)
  Sender: FDA-Public Use
  Company Number: US-ROCHE-727172

PATIENT
  Age: 55 Year
  Sex: Male
  Weight: 74.8 kg

DRUGS (1)
  1. ACCUTANE [Suspect]
     Active Substance: ISOTRETINOIN
     Indication: AMOEBIASIS
     Route: 065

REACTIONS (8)
  - Peyronie^s disease [Unknown]
  - Colitis ulcerative [Unknown]
  - Crohn^s disease [Unknown]
  - Anal fissure [Unknown]
  - Arthritis [Unknown]
  - Intestinal haemorrhage [Unknown]
  - Gastrointestinal injury [Unknown]
  - Intestinal obstruction [Unknown]

NARRATIVE: CASE EVENT DATE: 2000
